FAERS Safety Report 5117972-2 (Version None)
Quarter: 2006Q3

REPORT INFORMATION
  Report Type: 
  Country: None (occurrence: None)
  Receive Date: 20060926
  Receipt Date: 20060915
  Transmission Date: 20061208
  Serious: Yes (Death)
  Sender: FDA-Public Use
  Company Number: 2006JP000053

PATIENT
  Age: 74 Year
  Sex: Female

DRUGS (10)
  1. TACROLIMUS CAPSULES(TACROLIMUS CAPSULES) CAPSULE [Suspect]
     Indication: RHEUMATOID ARTHRITIS
     Dosage: 1.5 MG , UNKNOWN/D, ORAL
     Route: 048
     Dates: start: 20051129, end: 20060110
  2. AMLODIPINE BESYLATE [Concomitant]
  3. FOSAMAC (ALENDRONATE SODIUM) [Concomitant]
  4. ALFAROL (ALFACALCIDOL) [Concomitant]
  5. LOXONIN (LOXOPROFEN SODIUM) [Concomitant]
  6. PREDNISOLONE [Concomitant]
  7. KENACORT [Concomitant]
  8. LIMETHASONE (GLYCEROL, DEXAMETHASONE PALMITATE, LECITHIN, GLYCINE MAX [Concomitant]
  9. VOLTAREN [Concomitant]
  10. INTENURSE (INDOMETACIN) [Concomitant]

REACTIONS (4)
  - ASPIRATION [None]
  - INJURY ASPHYXIATION [None]
  - SHOCK [None]
  - VOMITING [None]
